FAERS Safety Report 9013830 (Version 1)
Quarter: 2012Q4

REPORT INFORMATION
  Report Type: Spontaneous
  Country: US (occurrence: None)
  Receive Date: 20121231
  Receipt Date: 20121231
  Transmission Date: 20130627
  Serious: Yes (Death)
  Sender: FDA-Public Use
  Company Number: KAD201212-000528

PATIENT

DRUGS (3)
  1. TOPOTECAN [Suspect]
     Dosage: 3 mg/me2 per day, with subsequent doses tareted to total systemic exposure of 100+20 ng h/ml
  2. CY (CY) [Suspect]
  3. CY (CY) [Suspect]

REACTIONS (1)
  - Venoocclusive disease [None]
